FAERS Safety Report 7090098-7 (Version None)
Quarter: 2010Q4

REPORT INFORMATION
  Report Type: 
  Country: None (occurrence: None)
  Receive Date: 20101109
  Receipt Date: 20101027
  Transmission Date: 20110411
  Serious: Yes (Other)
  Sender: FDA-Public Use
  Company Number: FR-BAYER-201044123GPV

PATIENT
  Age: 9 Year
  Sex: Male

DRUGS (5)
  1. CIPROFLOXACIN [Suspect]
     Indication: SEPSIS SYNDROME
     Route: 042
  2. AMIKACIN [Suspect]
     Indication: SEPSIS
     Route: 042
  3. IMIPENEM AND CILASTATIN SODIUM [Suspect]
     Indication: SEPSIS
     Route: 042
  4. MORPHINE [Concomitant]
     Indication: PERIPHERAL ARTERIAL OCCLUSIVE DISEASE
     Route: 042
  5. HYDROXYUREA [Concomitant]
     Indication: SICKLE CELL ANAEMIA

REACTIONS (1)
  - ENTEROBACTER SEPSIS [None]
